FAERS Safety Report 10100429 (Version 1)
Quarter: 2014Q2

REPORT INFORMATION
  Report Type: Spontaneous
  Country: CA (occurrence: CA)
  Receive Date: 20140423
  Receipt Date: 20140423
  Transmission Date: 20141212
  Serious: Yes (Other)
  Sender: FDA-Public Use
  Company Number: CA-GE HEALTHCARE MEDICAL DIAGNOSTICS-VISP-PR-1404S-0184

PATIENT
  Age: 61 Year
  Sex: Female
  Weight: 68.1 kg

DRUGS (2)
  1. VISIPAQUE [Suspect]
     Indication: ABDOMINAL PAIN
     Route: 042
     Dates: start: 20140416, end: 20140416
  2. VISIPAQUE [Suspect]
     Indication: DIAGNOSTIC PROCEDURE

REACTIONS (3)
  - Hypoaesthesia oral [Recovered/Resolved]
  - Feeling abnormal [Recovered/Resolved]
  - Local swelling [Recovered/Resolved]
